FAERS Safety Report 25145815 (Version 1)
Quarter: 2025Q2

REPORT INFORMATION
  Report Type: Spontaneous
  Country: CH (occurrence: CH)
  Receive Date: 20250401
  Receipt Date: 20250401
  Transmission Date: 20250717
  Serious: Yes (Hospitalization, Other)
  Sender: PFIZER
  Company Number: None

PATIENT
  Age: 42 Year
  Sex: Female
  Weight: 54.3 kg

DRUGS (14)
  1. ALDACTONE [Suspect]
     Active Substance: SPIRONOLACTONE
     Dosage: 100 MG, 2X/DAY (1-0-1-0)
     Route: 048
     Dates: end: 20250214
  2. TRAZODONE HYDROCHLORIDE [Suspect]
     Active Substance: TRAZODONE HYDROCHLORIDE
     Dosage: 150 MG, 1X/DAY (0-0-0-1)
     Route: 048
     Dates: end: 20250214
  3. DULOXETINE HYDROCHLORIDE [Suspect]
     Active Substance: DULOXETINE HYDROCHLORIDE
     Dosage: 60 MG, 1X/DAY (2-0-0-0)
     Route: 048
     Dates: end: 20250214
  4. PANTOPRAZOLE SODIUM [Suspect]
     Active Substance: PANTOPRAZOLE SODIUM
     Dosage: 40 MG, 1X/DAY (1-0-0-0)
     Route: 048
  5. QUETIAPINE FUMARATE [Suspect]
     Active Substance: QUETIAPINE FUMARATE
     Dosage: 25 MG, 2X/DAY (1-0-1-0)
     Route: 048
  6. ISOPTIN [Concomitant]
     Active Substance: VERAPAMIL HYDROCHLORIDE
     Dosage: 120 MG, 1X/DAY (0-0-0-1)
     Route: 048
     Dates: end: 20250214
  7. POTASSIUM CHLORIDE [Concomitant]
     Active Substance: POTASSIUM CHLORIDE
     Dosage: 20 MMOL, 2X/DAY (2-0-2-0)
     Route: 048
  8. BUDESONIDE\FORMOTEROL FUMARATE DIHYDRATE [Concomitant]
     Active Substance: BUDESONIDE\FORMOTEROL FUMARATE DIHYDRATE
     Route: 055
  9. LEUCOVORIN [Concomitant]
     Active Substance: LEUCOVORIN\LEUCOVORIN CALCIUM
     Dosage: 15 MG, WEEKLY
     Route: 048
  10. METAMIZOLE [Concomitant]
     Active Substance: METAMIZOLE
     Dosage: 1000 MG, 4X/DAY (2-2-2-2)
     Route: 048
  11. METHOTREXATE [Concomitant]
     Active Substance: METHOTREXATE
     Dosage: 20 MG, WEEKLY
     Route: 058
  12. BECOZYM-F [Concomitant]
     Route: 048
  13. ZOLPIDEM TARTRATE [Concomitant]
     Active Substance: ZOLPIDEM TARTRATE
     Dosage: 12.5 MG, 1X/DAY (0-0-0-1)
     Route: 048
  14. MAGNESIUM ASPARTATE HYDROCHLORIDE [Concomitant]
     Active Substance: MAGNESIUM ASPARTATE HYDROCHLORIDE
     Route: 048

REACTIONS (3)
  - Hyponatraemia [Recovered/Resolved]
  - General physical health deterioration [Recovering/Resolving]
  - Dizziness [Unknown]

NARRATIVE: CASE EVENT DATE: 20250214
